FAERS Safety Report 8574852-8 (Version None)
Quarter: 2012Q2

REPORT INFORMATION
  Report Type: 
  Country: None (occurrence: None)
  Receive Date: 20120423
  Receipt Date: 20091217
  Transmission Date: 20120825
  Serious: Yes (Other)
  Sender: FDA-Public Use
  Company Number: PHEH2009US15430

PATIENT
  Age: 3 Year

DRUGS (2)
  1. EXJADE [Suspect]
     Dosage: 250 MG, ORAL, 250 MG, ORAL
     Route: 048
     Dates: start: 20090824
  2. EXJADE [Suspect]
     Dosage: 250 MG, ORAL, 250 MG, ORAL
     Route: 048
     Dates: end: 20091016

REACTIONS (1)
  - NEUTROPENIA [None]
